FAERS Safety Report 4656989-9 (Version None)
Quarter: 2005Q2

REPORT INFORMATION
  Report Type: 
  Country: None (occurrence: None)
  Receive Date: 20050506
  Receipt Date: 20050429
  Transmission Date: 20051028
  Serious: Yes (Hospitalization)
  Sender: FDA-Public Use
  Company Number: 2005068244

PATIENT
  Age: 47 Year
  Sex: Female

DRUGS (4)
  1. ATORVASTATIN CALCIUM [Suspect]
     Indication: ILL-DEFINED DISORDER
     Dosage: 10 MG (10 MG, 1 IN 1 D),ORAL
     Route: 048
     Dates: start: 20041022
  2. AMISULPRIDE (AMISULPRIDE) [Suspect]
     Indication: SCHIZOPHRENIA
     Dosage: 1000 MG, ORAL
     Route: 048
     Dates: start: 20041207
  3. PERAZINE (PERAZINE) [Suspect]
     Indication: SCHIZOPHRENIA
     Dosage: 200 MG, ORAL
     Route: 048
     Dates: start: 20041207
  4. HEPARIN-FRACTION, SODIUM SALT (HEPARIN-FRACTION, SODIUM SALT) [Concomitant]

REACTIONS (4)
  - CONVULSION [None]
  - DRUG INTERACTION [None]
  - INCONTINENCE [None]
  - PARKINSONISM [None]
